FAERS Safety Report 15155838 (Version 1)
Quarter: 2018Q3

REPORT INFORMATION
  Report Type: Spontaneous
  Country: DE (occurrence: DE)
  Receive Date: 20180717
  Receipt Date: 20180717
  Transmission Date: 20181010
  Serious: Yes (Other)
  Sender: FDA-Public Use
  Company Number: DE-US WORLDMEDS, LLC-STA_00018318

PATIENT
  Sex: Male
  Weight: 114 kg

DRUGS (11)
  1. APOMORPHINE HYDROCHLORIDE [Suspect]
     Active Substance: APOMORPHINE HYDROCHLORIDE
     Indication: PARKINSON^S DISEASE
     Dosage: FROM 05.00 AM UNTIL 10.00 PM, NO BOLUS
     Route: 058
     Dates: start: 20140723
  2. LEVODOPA [Concomitant]
     Active Substance: LEVODOPA
  3. NACOM 200/50MG [Concomitant]
  4. PANTOZOL [Concomitant]
     Active Substance: PANTOPRAZOLE SODIUM
  5. ASS 100MG [Concomitant]
     Active Substance: ASPIRIN
  6. METFORMIN [Concomitant]
     Active Substance: METFORMIN HYDROCHLORIDE
  7. RAMILICH 5MG [Concomitant]
  8. RIVOTRIL [Concomitant]
     Active Substance: CLONAZEPAM
  9. MADOPAR LT 100/25MG [Concomitant]
  10. SIMVABETA 20MG [Concomitant]
  11. TORAGAMMA 10MG [Concomitant]

REACTIONS (1)
  - Injection site necrosis [Recovered/Resolved]
